FAERS Safety Report 24048927 (Version 1)
Quarter: 2024Q3

REPORT INFORMATION
  Report Type: Spontaneous
  Country: US (occurrence: US)
  Receive Date: 20240704
  Receipt Date: 20240704
  Transmission Date: 20241017
  Serious: Yes (Other)
  Sender: INFORLIFE
  Company Number: US-INFO-20240171

PATIENT
  Age: 62 Year
  Sex: Female

DRUGS (5)
  1. NOREPINEPHRINE BITARTRATE IN SODIUM CHLORIDE [Suspect]
     Active Substance: NOREPINEPHRINE BITARTRATE
     Dosage: EXPIRY DATE: AUG-2025 ()
  2. SODIUM BICARBONATE [Concomitant]
     Active Substance: SODIUM BICARBONATE
     Dosage: ()
     Route: 041
  3. DOPAMINE [Concomitant]
     Active Substance: DOPAMINE HYDROCHLORIDE
     Dosage: ()
     Route: 041
  4. FENTANYL [Concomitant]
     Active Substance: FENTANYL\FENTANYL CITRATE
     Dosage: ()
     Route: 041
  5. PROPOFOL [Concomitant]
     Active Substance: PROPOFOL
     Dosage: ()
     Route: 041

REACTIONS (2)
  - Product packaging issue [Unknown]
  - No adverse event [Unknown]
